FAERS Safety Report 5423464-3 (Version None)
Quarter: 2007Q3

REPORT INFORMATION
  Report Type: 
  Country: None (occurrence: None)
  Receive Date: 20070823
  Receipt Date: 20070813
  Transmission Date: 20080115
  Serious: Yes (Other)
  Sender: FDA-Public Use
  Company Number: AR-PFIZER INC-2007067401

PATIENT
  Sex: Female

DRUGS (1)
  1. SUTENT [Suspect]

REACTIONS (2)
  - OESOPHAGEAL DISORDER [None]
  - ORAL FUNGAL INFECTION [None]
